FAERS Safety Report 6719533-8 (Version None)
Quarter: 2010Q2

REPORT INFORMATION
  Report Type: 
  Country: None (occurrence: None)
  Receive Date: 20100510
  Receipt Date: 20100510
  Transmission Date: 20101027
  Serious: No
  Sender: FDA-Public Use
  Company Number: None

PATIENT
  Age: 68 Year
  Sex: Female
  Weight: 66.6788 kg

DRUGS (2)
  1. CLINDAMYCIN [Suspect]
     Indication: DENTAL DISORDER PROPHYLAXIS
     Dosage: 1 3 OVER 24 HOURS PO
     Route: 048
     Dates: start: 20100507, end: 20100509
  2. CLINDAMYCIN [Suspect]
     Indication: INFECTION
     Dosage: 1 3 OVER 24 HOURS PO
     Route: 048
     Dates: start: 20100507, end: 20100509

REACTIONS (2)
  - INFECTION [None]
  - SWELLING FACE [None]
